FAERS Safety Report 11496485 (Version 1)
Quarter: 2015Q3

REPORT INFORMATION
  Report Type: Spontaneous
  Country: US (occurrence: US)
  Receive Date: 20150911
  Receipt Date: 20150911
  Transmission Date: 20151125
  Serious: No
  Sender: FDA-Public Use
  Company Number: US-BAYER-2015-416928

PATIENT
  Age: 89 Year
  Sex: Male
  Weight: 63.49 kg

DRUGS (8)
  1. VITAMIN D3 [Concomitant]
     Active Substance: CHOLECALCIFEROL
  2. STATIN [Concomitant]
     Active Substance: UNSPECIFIED INGREDIENT
  3. VITAMIN B12 [Concomitant]
     Active Substance: CYANOCOBALAMIN
  4. ATORVASTATIN [Concomitant]
     Active Substance: ATORVASTATIN
  5. MULTIVITAMIN [Concomitant]
     Active Substance: VITAMINS
  6. FLONASE [Concomitant]
     Active Substance: FLUTICASONE PROPIONATE
  7. CLARITIN [Suspect]
     Active Substance: LORATADINE
     Dosage: 1 DF, QD
     Route: 048
     Dates: start: 20150901
  8. BAYER LOW DOSE [Concomitant]
     Active Substance: ASPIRIN

REACTIONS (2)
  - Somnolence [Unknown]
  - Asthenia [None]

NARRATIVE: CASE EVENT DATE: 20150902
